FAERS Safety Report 4410635-8 (Version None)
Quarter: 2004Q3

REPORT INFORMATION
  Report Type: 
  Country: None (occurrence: None)
  Receive Date: 20040726
  Receipt Date: 20040712
  Transmission Date: 20050211
  Serious: Yes (Other)
  Sender: FDA-Public Use
  Company Number: 2004046963

PATIENT
  Age: 42 Year
  Sex: Female
  Weight: 77 kg

DRUGS (8)
  1. DOXEPIN HCL [Suspect]
     Indication: ILL-DEFINED DISORDER
     Dosage: UNKNOWN
     Route: 065
     Dates: start: 19900101, end: 20010326
  2. BUPROPION HYDROCHLORIDE [Suspect]
     Indication: ILL-DEFINED DISORDER
     Dosage: UNKNOWN
     Route: 065
     Dates: start: 19960101, end: 20010326
  3. VENLAFAXINE HCL [Concomitant]
  4. LORAZEPAM [Concomitant]
  5. BENAZEPRIL HCL [Concomitant]
  6. ATENOLOL [Concomitant]
  7. VICODIN [Concomitant]
  8. METHADONE (METHADONE) [Concomitant]

REACTIONS (5)
  - CONVULSION [None]
  - LOSS OF CONSCIOUSNESS [None]
  - NAUSEA [None]
  - SINUS TACHYCARDIA [None]
  - TREMOR [None]
